FAERS Safety Report 19458144 (Version 2)
Quarter: 2021Q4

REPORT INFORMATION
  Report Type: Report from Study
  Country: US (occurrence: US)
  Receive Date: 20210624
  Receipt Date: 20211028
  Transmission Date: 20220303
  Serious: No
  Sender: FDA-Public Use
  Company Number: NVSC2021US141509

PATIENT
  Sex: Male

DRUGS (1)
  1. ENTRESTO [Suspect]
     Active Substance: SACUBITRIL\VALSARTAN
     Indication: Product used for unknown indication
     Dosage: UNK UNK, BID
     Route: 048

REACTIONS (6)
  - Anxiety [Unknown]
  - Mental disorder [Unknown]
  - Renal disorder [Unknown]
  - Gastrointestinal disorder [Unknown]
  - Fatigue [Unknown]
  - Asthenia [Unknown]
